FAERS Safety Report 23147382 (Version 1)
Quarter: 2023Q4

REPORT INFORMATION
  Report Type: Spontaneous
  Country: ES (occurrence: ES)
  Receive Date: 20231106
  Receipt Date: 20231106
  Transmission Date: 20240109
  Serious: Yes (Other)
  Sender: FDA-Public Use
  Company Number: ES-ELI_LILLY_AND_COMPANY-ES202310003685

PATIENT
  Age: 22 Year
  Sex: Male

DRUGS (2)
  1. OLANZAPINE [Suspect]
     Active Substance: OLANZAPINE
     Indication: Affect lability
     Dates: start: 202210, end: 20230912
  2. LORAZEPAM [Concomitant]
     Active Substance: LORAZEPAM
     Indication: Sleep disorder

REACTIONS (6)
  - Insomnia [Unknown]
  - Anxiety [Unknown]
  - Tinnitus [Unknown]
  - Visual impairment [Unknown]
  - Dizziness [Unknown]
  - Drug withdrawal syndrome [Unknown]
